FAERS Safety Report 17840726 (Version 1)
Quarter: 2020Q2

REPORT INFORMATION
  Report Type: Report from Study
  Country: NL (occurrence: NL)
  Receive Date: 20200529
  Receipt Date: 20200529
  Transmission Date: 20200714
  Serious: Yes (Other)
  Sender: FDA-Public Use
  Company Number: NL-TEVA-2020-NL-1240461

PATIENT
  Age: 66 Year
  Sex: Female

DRUGS (7)
  1. AMOXICILLINE [Suspect]
     Active Substance: AMOXICILLIN
     Route: 065
  2. ADALIMUMAB [Concomitant]
     Active Substance: ADALIMUMAB
     Dosage: 40MG, 1X/2W
     Dates: start: 20071005
  3. NEXIUM [Concomitant]
     Active Substance: ESOMEPRAZOLE MAGNESIUM
     Dosage: 20 MILLIGRAM DAILY; 20MG, 1X/D
     Dates: start: 20071001
  4. COLECALCHIFEROL [Concomitant]
     Dosage: 2ML, 1X/2W
     Dates: start: 20180109
  5. CALCI CHEW D3 [Concomitant]
     Active Substance: CALCIUM CARBONATE\CHOLECALCIFEROL
     Dosage: 1000 MILLIGRAM DAILY;
     Dates: start: 20180109
  6. QUESTRAN [Concomitant]
     Active Substance: CHOLESTYRAMINE
     Dosage: 4G, ZN
     Dates: start: 20100628
  7. VITAMINE B12 (INJECTIE) [Concomitant]
     Dosage: 100UG, 1X/2M
     Dates: start: 20120514

REACTIONS (1)
  - Diarrhoea haemorrhagic [Recovered/Resolved]

NARRATIVE: CASE EVENT DATE: 20200427
